FAERS Safety Report 14918085 (Version 1)
Quarter: 2018Q2

REPORT INFORMATION
  Report Type: Spontaneous
  Country: FR (occurrence: FR)
  Receive Date: 20180521
  Receipt Date: 20180521
  Transmission Date: 20180711
  Serious: Yes (Other)
  Sender: FDA-Public Use
  Company Number: FR-MERCK KGAA-2048119

PATIENT
  Age: 68 Year
  Sex: Female

DRUGS (1)
  1. NOVOTHYROX [Suspect]
     Active Substance: LEVOTHYROXINE SODIUM
     Indication: HYPOTHYROIDISM

REACTIONS (16)
  - Stress [None]
  - Pruritus [Not Recovered/Not Resolved]
  - Headache [Not Recovered/Not Resolved]
  - Cognitive disorder [Not Recovered/Not Resolved]
  - Dizziness [None]
  - Loss of personal independence in daily activities [None]
  - Anterograde amnesia [Not Recovered/Not Resolved]
  - Hyperacusis [None]
  - Palpitations [Not Recovered/Not Resolved]
  - Fatigue [None]
  - Personal relationship issue [None]
  - Blood thyroid stimulating hormone increased [None]
  - Vertigo [Not Recovered/Not Resolved]
  - Social avoidant behaviour [None]
  - Feeling jittery [None]
  - Muscle spasms [Not Recovered/Not Resolved]

NARRATIVE: CASE EVENT DATE: 201705
